FAERS Safety Report 9714018 (Version 1)
Quarter: 2013Q4

REPORT INFORMATION
  Report Type: Spontaneous
  Country: US (occurrence: US)
  Receive Date: 20131126
  Receipt Date: 20131126
  Transmission Date: 20140711
  Serious: No
  Sender: FDA-Public Use
  Company Number: US-GILEAD-2008-0018587

PATIENT
  Age: 64 Year
  Sex: Male

DRUGS (4)
  1. LETAIRIS [Suspect]
     Indication: PULMONARY ARTERIAL HYPERTENSION
     Route: 048
     Dates: start: 20080917
  2. CORTEF [Concomitant]
  3. SYNTHROID [Concomitant]
  4. DDAVP [Concomitant]

REACTIONS (1)
  - Nasal congestion [None]
